FAERS Safety Report 25300118 (Version 1)
Quarter: 2025Q2

REPORT INFORMATION
  Report Type: Spontaneous
  Country: US (occurrence: None)
  Receive Date: 20250510
  Receipt Date: 20250510
  Transmission Date: 20250716
  Serious: No
  Sender: FDA-CTU
  Company Number: None

PATIENT
  Age: 65 Year
  Sex: Female
  Weight: 69.75 kg

DRUGS (7)
  1. FORTEO [Suspect]
     Active Substance: TERIPARATIDE
     Indication: Osteoporosis
     Dates: start: 20250128, end: 20250509
  2. NOVOLOG [Concomitant]
     Active Substance: INSULIN ASPART
  3. Tandem Mobi insulin pump [Concomitant]
  4. FORTEO [Concomitant]
     Active Substance: TERIPARATIDE
  5. SYNTHROID [Concomitant]
     Active Substance: LEVOTHYROXINE SODIUM
  6. OXYCODONE [Concomitant]
     Active Substance: OXYCODONE
  7. AMLODIPINE [Concomitant]
     Active Substance: AMLODIPINE BESYLATE

REACTIONS (7)
  - Arthralgia [None]
  - Pain in extremity [None]
  - Arthralgia [None]
  - Arthralgia [None]
  - Pelvic pain [None]
  - Back pain [None]
  - Drug ineffective [None]
